FAERS Safety Report 20291013 (Version 2)
Quarter: 2022Q1

REPORT INFORMATION
  Report Type: Spontaneous
  Country: IN (occurrence: IN)
  Receive Date: 20220104
  Receipt Date: 20220117
  Transmission Date: 20220423
  Serious: Yes (Hospitalization)
  Sender: FDA-Public Use
  Company Number: IN-PFIZER INC-2018531099

PATIENT
  Age: 46 Year
  Sex: Male

DRUGS (2)
  1. SUTENT [Suspect]
     Active Substance: SUNITINIB MALATE
     Indication: Metastatic renal cell carcinoma
     Dosage: 50 MG, 1X/DAY
     Route: 048
     Dates: start: 20181205, end: 20211116
  2. SUTENT [Suspect]
     Active Substance: SUNITINIB MALATE
     Dosage: 37.5MG X 3 WEEK

REACTIONS (8)
  - Blood pressure abnormal [Unknown]
  - Blood creatinine increased [Unknown]
  - Blood glucose increased [Unknown]
  - Haemoglobin decreased [Unknown]
  - Blood urea increased [Unknown]
  - Blood sodium decreased [Unknown]
  - White blood cells urine positive [Unknown]
  - Red blood cells urine positive [Unknown]

NARRATIVE: CASE EVENT DATE: 20210927
